FAERS Safety Report 7429574-3 (Version None)
Quarter: 2011Q2

REPORT INFORMATION
  Report Type: 
  Country: None (occurrence: None)
  Receive Date: 20110421
  Receipt Date: 20110413
  Transmission Date: 20111010
  Serious: Yes (Other)
  Sender: FDA-Public Use
  Company Number: A0923789A

PATIENT
  Sex: Female

DRUGS (1)
  1. TYKERB [Suspect]
     Dosage: 1000MGD PER DAY
     Route: 048
     Dates: start: 20110407

REACTIONS (9)
  - EPISTAXIS [None]
  - SENSATION OF FOREIGN BODY [None]
  - TREATMENT NONCOMPLIANCE [None]
  - DIARRHOEA [None]
  - PHARYNGEAL OEDEMA [None]
  - RECTAL HAEMORRHAGE [None]
  - DYSPNOEA [None]
  - EPIGLOTTIC OEDEMA [None]
  - PROCTALGIA [None]
